FAERS Safety Report 13359366 (Version 2)
Quarter: 2017Q2

REPORT INFORMATION
  Report Type: Spontaneous
  Country: GB (occurrence: GB)
  Receive Date: 20170322
  Receipt Date: 20170404
  Transmission Date: 20170830
  Serious: Yes (Life-Threatening, Hospitalization)
  Sender: FDA-Public Use
  Company Number: GB-SA-2017SA045429

PATIENT
  Age: 36 Year
  Sex: Female
  Weight: 94.2 kg

DRUGS (12)
  1. METHYLDOPA. [Concomitant]
     Active Substance: METHYLDOPA
  2. SERTRALINE [Concomitant]
     Active Substance: SERTRALINE HYDROCHLORIDE
     Dates: start: 20140203
  3. APIDRA [Suspect]
     Active Substance: INSULIN GLULISINE
     Dosage: DOSE:10 UNIT(S)
     Route: 065
     Dates: start: 20161011
  4. HUMULIN N [Suspect]
     Active Substance: INSULIN HUMAN
     Indication: TYPE 2 DIABETES MELLITUS
     Route: 058
  5. DALTEPARIN [Concomitant]
     Active Substance: DALTEPARIN
     Dates: start: 201703
  6. METFORMIN [Suspect]
     Active Substance: METFORMIN HYDROCHLORIDE
     Indication: POLYCYSTIC OVARIES
     Route: 048
     Dates: start: 20050301
  7. APIDRA [Suspect]
     Active Substance: INSULIN GLULISINE
     Indication: TYPE 2 DIABETES MELLITUS
     Dosage: DOSE:10 UNIT(S)
     Route: 065
     Dates: start: 20161011
  8. LABETALOL [Concomitant]
     Active Substance: LABETALOL\LABETALOL HYDROCHLORIDE
     Dosage: INFUSION
  9. METFORMIN [Suspect]
     Active Substance: METFORMIN HYDROCHLORIDE
     Indication: TYPE 2 DIABETES MELLITUS
     Route: 048
     Dates: start: 20050301
  10. FOLIC ACID. [Concomitant]
     Active Substance: FOLIC ACID
  11. HUMULIN N [Suspect]
     Active Substance: INSULIN HUMAN
     Indication: TYPE 2 DIABETES MELLITUS
     Dosage: DOSE:260 UNIT(S)
     Route: 058
     Dates: start: 20141125
  12. ASPIRIN. [Concomitant]
     Active Substance: ASPIRIN
     Dates: start: 201610

REACTIONS (2)
  - Diabetic ketoacidosis [Recovered/Resolved]
  - Exposure during pregnancy [Unknown]

NARRATIVE: CASE EVENT DATE: 20160726
